FAERS Safety Report 13037663 (Version 1)
Quarter: 2016Q4

REPORT INFORMATION
  Report Type: Spontaneous
  Country: US (occurrence: US)
  Receive Date: 20161217
  Receipt Date: 20161217
  Transmission Date: 20170207
  Serious: No
  Sender: FDA-Public Use
  Company Number: US-009507513-1612USA003261

PATIENT
  Sex: Female

DRUGS (1)
  1. TRILAFON [Suspect]
     Active Substance: PERPHENAZINE
     Dosage: UNK
     Route: 048

REACTIONS (1)
  - Product use issue [Unknown]

NARRATIVE: CASE EVENT DATE: 2002
